FAERS Safety Report 5813460-6 (Version None)
Quarter: 2008Q3

REPORT INFORMATION
  Report Type: 
  Country: None (occurrence: None)
  Receive Date: 20080716
  Receipt Date: 20080716
  Transmission Date: 20090109
  Serious: No
  Sender: FDA-Public Use
  Company Number: None

PATIENT
  Age: 51 Year
  Sex: Male

DRUGS (1)
  1. PROMETHAZINE [Suspect]
     Indication: ABDOMINAL PAIN UPPER
     Dosage: 25 MG ONCE IV
     Route: 042
     Dates: start: 20080525, end: 20080525

REACTIONS (5)
  - INFUSION SITE EXTRAVASATION [None]
  - LOCAL REACTION [None]
  - PRURITUS [None]
  - RASH ERYTHEMATOUS [None]
  - URTICARIA [None]
